FAERS Safety Report 6437429-6 (Version None)
Quarter: 2009Q4

REPORT INFORMATION
  Report Type: 
  Country: None (occurrence: None)
  Receive Date: 20091112
  Receipt Date: 20081007
  Transmission Date: 20100525
  Serious: No
  Sender: FDA-Public Use
  Company Number: US-ASTRAZENECA-2009UW15383

PATIENT
  Sex: Female

DRUGS (4)
  1. PRILOSEC OTC [Suspect]
     Indication: PROPHYLAXIS
     Dosage: 1 TABLET, 1 ONLY FOR 1 DAY
     Route: 048
     Dates: start: 20081007, end: 20081007
  2. TRICOR [Concomitant]
  3. ZOCOR [Concomitant]
  4. JOINT REPAIR MEDICATION [Concomitant]

REACTIONS (1)
  - FEELING ABNORMAL [None]
